FAERS Safety Report 6966217-7 (Version None)
Quarter: 2010Q3

REPORT INFORMATION
  Report Type: 
  Country: None (occurrence: None)
  Receive Date: 20100903
  Receipt Date: 20100824
  Transmission Date: 20110219
  Serious: Yes (Other)
  Sender: FDA-Public Use
  Company Number: US-BAYER-200916407NA

PATIENT
  Age: 33 Year
  Sex: Female
  Weight: 88 kg

DRUGS (34)
  1. MAGNEVIST [Suspect]
     Indication: NUCLEAR MAGNETIC RESONANCE IMAGING BRAIN
     Dates: start: 20030311, end: 20030311
  2. MAGNEVIST [Suspect]
     Dates: start: 20060427, end: 20060427
  3. OMNISCAN [Suspect]
     Indication: NUCLEAR MAGNETIC RESONANCE IMAGING ABDOMINAL
     Dosage: TOTAL DAILY DOSE: 40 ML
     Dates: start: 20020912, end: 20020912
  4. OPTIMARK [Suspect]
     Indication: NUCLEAR MAGNETIC RESONANCE IMAGING
  5. MULTIHANCE [Suspect]
     Indication: NUCLEAR MAGNETIC RESONANCE IMAGING
  6. PROHANCE [Suspect]
     Indication: NUCLEAR MAGNETIC RESONANCE IMAGING
  7. ACIPHEX [Concomitant]
     Indication: GASTROOESOPHAGEAL REFLUX DISEASE
  8. ALBUTEROL SULATE [Concomitant]
     Indication: WHEEZING
     Dates: start: 20021001, end: 20021101
  9. ALBUTEROL SULATE [Concomitant]
     Dates: start: 20080101
  10. CLONAZEPAM [Concomitant]
     Indication: ANXIETY
  11. COREG [Concomitant]
  12. COUMADIN [Concomitant]
     Indication: ANTICOAGULANT THERAPY
     Dates: start: 20020901, end: 20080101
  13. DEPO-PROVERA [Concomitant]
  14. EPOGEN [Concomitant]
     Indication: ANAEMIA
     Dates: start: 20020901
  15. EPOGEN [Concomitant]
     Dates: start: 20010501
  16. EPOGEN [Concomitant]
     Dates: start: 20070901
  17. LORTAB [Concomitant]
     Indication: PAIN
     Dates: start: 20050101
  18. VERAPAMIL [Concomitant]
     Indication: HYPERTENSION
  19. MULTI-VITAMINS [Concomitant]
     Indication: MEDICAL DIET
     Dates: start: 20000101
  20. CYCLOSPORINE [Concomitant]
     Indication: PROPHYLAXIS AGAINST TRANSPLANT REJECTION
     Dates: start: 20010101
  21. CELLCEPT [Concomitant]
     Indication: PROPHYLAXIS AGAINST TRANSPLANT REJECTION
     Dates: start: 20010101
  22. PREDNISONE [Concomitant]
     Indication: PROPHYLAXIS AGAINST TRANSPLANT REJECTION
     Dates: start: 20020101
  23. LOPRESSOR [Concomitant]
     Indication: HYPERTENSION
     Dates: start: 20010101
  24. LUPRON [Concomitant]
     Indication: BLOODY PERITONEAL EFFLUENT
     Dates: start: 20030401
  25. CALCIUM CARBONATE [Concomitant]
  26. RENAGEL [Concomitant]
  27. TUMS [Concomitant]
  28. PLAQUENIL [Concomitant]
  29. SENSIPAR [Concomitant]
  30. ROCALTROL [Concomitant]
  31. INDERAL [Concomitant]
  32. CALCIUM [Concomitant]
  33. MONOPRIL [Concomitant]
  34. RAMIPRIL [Concomitant]

REACTIONS (25)
  - ANHEDONIA [None]
  - ANXIETY [None]
  - BACK PAIN [None]
  - EMOTIONAL DISTRESS [None]
  - EXFOLIATIVE RASH [None]
  - GAIT DISTURBANCE [None]
  - HYPERKERATOSIS [None]
  - JOINT RANGE OF MOTION DECREASED [None]
  - MUSCLE FATIGUE [None]
  - MUSCULOSKELETAL STIFFNESS [None]
  - NEPHROGENIC SYSTEMIC FIBROSIS [None]
  - OEDEMA [None]
  - OEDEMA PERIPHERAL [None]
  - PAIN [None]
  - PAIN IN EXTREMITY [None]
  - PARAESTHESIA [None]
  - PEAU D'ORANGE [None]
  - RASH PAPULAR [None]
  - RASH PRURITIC [None]
  - SKIN HYPERPIGMENTATION [None]
  - SKIN HYPERTROPHY [None]
  - SKIN INDURATION [None]
  - SKIN PLAQUE [None]
  - SKIN TIGHTNESS [None]
  - SUBCUTANEOUS NODULE [None]
